FAERS Safety Report 7908509-0 (Version None)
Quarter: 2011Q4

REPORT INFORMATION
  Report Type: 
  Country: None (occurrence: None)
  Receive Date: 20111111
  Receipt Date: 20111101
  Transmission Date: 20120403
  Serious: Yes (Hospitalization)
  Sender: FDA-Public Use
  Company Number: US-BAYER-2011-027786

PATIENT
  Age: 30 Year
  Sex: Female
  Weight: 66 kg

DRUGS (17)
  1. YASMIN [Suspect]
     Indication: ENDOMETRIOSIS
  2. YASMIN [Suspect]
     Indication: PREMENSTRUAL SYNDROME
  3. YAZ [Suspect]
     Indication: PREMENSTRUAL SYNDROME
  4. FLUCONAZOLE [Concomitant]
     Dosage: 150 MG, UNK
  5. PROMETHAZINE [Concomitant]
     Dosage: 25 MG, UNK
  6. YAZ [Suspect]
     Indication: CONTRACEPTION
     Dosage: UNK
     Dates: start: 20071101, end: 20080601
  7. HYDROCODONE BITARTRATE AND ACETAMINOPHEN [Concomitant]
  8. PHENERGAN [Concomitant]
  9. LEVAQUIN [Concomitant]
     Dosage: 500 MG, QD X5 DAYS
  10. LEVAQUIN [Concomitant]
  11. FAMOTIDINE [Concomitant]
     Dosage: 40 MG, UNK
  12. AZITHROMYCIN [Concomitant]
     Dosage: 250 MG, UNK
  13. HYDROCODONE W/HOMATROPINE [Concomitant]
  14. YASMIN [Suspect]
     Indication: CONTRACEPTION
     Dosage: UNK, QD
     Route: 048
     Dates: start: 20010701, end: 20071101
  15. YAZ [Suspect]
     Indication: ENDOMETRIOSIS
  16. PEPCID [Concomitant]
     Dosage: 30 MG, QD
     Route: 048
  17. VICODIN [Concomitant]
     Dosage: 5/500 MG AS NEEDED
     Route: 048

REACTIONS (8)
  - CHOLECYSTITIS CHRONIC [None]
  - EMOTIONAL DISTRESS [None]
  - GENERAL PHYSICAL HEALTH DETERIORATION [None]
  - PAIN [None]
  - ANHEDONIA [None]
  - INJURY [None]
  - GALLBLADDER INJURY [None]
  - ANXIETY [None]
